FAERS Safety Report 10853341 (Version 1)
Quarter: 2015Q1

REPORT INFORMATION
  Report Type: Spontaneous
  Country: None (occurrence: None)
  Receive Date: 20150218
  Receipt Date: 20150218
  Transmission Date: 20150721
  Serious: Yes (Death)
  Sender: FDA-Public Use
  Company Number: None

PATIENT
  Age: 81 Year
  Sex: Female

DRUGS (1)
  1. NEXAVAR [Suspect]
     Active Substance: SORAFENIB
     Indication: ILL-DEFINED DISORDER
     Dosage: 2 TABLETS
     Route: 048
     Dates: start: 20141125, end: 20150201

REACTIONS (1)
  - Death [None]

NARRATIVE: CASE EVENT DATE: 20150201
